FAERS Safety Report 4808523-8 (Version None)
Quarter: 2005Q4

REPORT INFORMATION
  Report Type: 
  Country: None (occurrence: None)
  Receive Date: 20051025
  Receipt Date: 20051021
  Transmission Date: 20060501
  Serious: Yes (Other)
  Sender: FDA-Public Use
  Company Number: US-JNJFOC-20051000040

PATIENT
  Sex: Female

DRUGS (2)
  1. ARESTIN [Suspect]
     Indication: PERIODONTITIS
     Route: 004
  2. TYLENOL (CAPLET) [Concomitant]

REACTIONS (2)
  - DEAFNESS UNILATERAL [None]
  - LABYRINTHITIS [None]
